FAERS Safety Report 7451228-8 (Version None)
Quarter: 2011Q2

REPORT INFORMATION
  Report Type: 
  Country: None (occurrence: None)
  Receive Date: 20110502
  Receipt Date: 20110422
  Transmission Date: 20111010
  Serious: Yes (Hospitalization)
  Sender: FDA-Public Use
  Company Number: US-ASTRAZENECA-2011SE18979

PATIENT
  Age: 55 Year
  Sex: Male
  Weight: 91.2 kg

DRUGS (15)
  1. SEROQUEL XR [Suspect]
     Route: 048
     Dates: start: 20100401, end: 20110417
  2. SEROQUEL XR [Suspect]
     Route: 048
  3. SEROQUEL XR [Suspect]
     Indication: BIPOLAR DISORDER
     Route: 048
     Dates: start: 20060101
  4. SEROQUEL XR [Suspect]
     Indication: DEPRESSION SUICIDAL
     Route: 048
     Dates: start: 20060101
  5. SEROQUEL XR [Suspect]
     Route: 048
  6. SEROQUEL XR [Suspect]
     Route: 048
     Dates: start: 20080101, end: 20080101
  7. GABAPENTIN [Concomitant]
     Indication: NEUROPATHY PERIPHERAL
  8. SEROQUEL XR [Suspect]
     Route: 048
  9. SEROQUEL XR [Suspect]
     Route: 048
  10. SEROQUEL XR [Suspect]
     Route: 048
     Dates: start: 20080101
  11. SEROQUEL XR [Suspect]
     Route: 048
     Dates: start: 20100401, end: 20110417
  12. SEROQUEL XR [Suspect]
     Route: 048
     Dates: start: 20080101, end: 20080101
  13. SEROQUEL XR [Suspect]
     Route: 048
     Dates: start: 20080101
  14. TRAZODONE HCL [Concomitant]
     Indication: SLEEP DISORDER
     Dosage: AS REQUIRED
  15. OXYBUYININE [Concomitant]
     Indication: PROSTATE CANCER

REACTIONS (19)
  - GAIT DISTURBANCE [None]
  - LABELLED DRUG-DRUG INTERACTION MEDICATION ERROR [None]
  - DIZZINESS [None]
  - FATIGUE [None]
  - NO ADVERSE EVENT [None]
  - TREMOR [None]
  - CHEST PAIN [None]
  - THERAPEUTIC RESPONSE UNEXPECTED [None]
  - BLOOD TRIGLYCERIDES INCREASED [None]
  - DRUG DOSE OMISSION [None]
  - DECREASED APPETITE [None]
  - INSOMNIA [None]
  - NEUROPATHY PERIPHERAL [None]
  - WEIGHT DECREASED [None]
  - ABDOMINAL DISCOMFORT [None]
  - NAUSEA [None]
  - DYSKINESIA [None]
  - INCORRECT DOSE ADMINISTERED [None]
  - PSYCHOMOTOR HYPERACTIVITY [None]
